FAERS Safety Report 25947709 (Version 1)
Quarter: 2025Q4

REPORT INFORMATION
  Report Type: Spontaneous
  Country: US (occurrence: US)
  Receive Date: 20251022
  Receipt Date: 20251022
  Transmission Date: 20260118
  Serious: No
  Sender: MYLAN
  Company Number: US-MYLANLABS-2025M1086642

PATIENT
  Age: 83 Year
  Sex: Male
  Weight: 83.46 kg

DRUGS (4)
  1. BREYNA [Suspect]
     Active Substance: BUDESONIDE\FORMOTEROL FUMARATE
     Indication: Pulmonary fibrosis
     Dosage: 160 PER 4.5 MICROGRAM, BID (TWICE A DAY)
     Dates: start: 20250803
  2. BREYNA [Suspect]
     Active Substance: BUDESONIDE\FORMOTEROL FUMARATE
     Dosage: 160 PER 4.5 MICROGRAM, BID (TWICE A DAY)
     Route: 055
     Dates: start: 20250803
  3. BREYNA [Suspect]
     Active Substance: BUDESONIDE\FORMOTEROL FUMARATE
     Dosage: 160 PER 4.5 MICROGRAM, BID (TWICE A DAY)
     Route: 055
     Dates: start: 20250803
  4. BREYNA [Suspect]
     Active Substance: BUDESONIDE\FORMOTEROL FUMARATE
     Dosage: 160 PER 4.5 MICROGRAM, BID (TWICE A DAY)
     Dates: start: 20250803

REACTIONS (3)
  - Off label use [Unknown]
  - Wrong technique in product usage process [Unknown]
  - Device malfunction [Unknown]

NARRATIVE: CASE EVENT DATE: 20250803
